FAERS Safety Report 4620512-5 (Version None)
Quarter: 2005Q1

REPORT INFORMATION
  Report Type: 
  Country: None (occurrence: None)
  Receive Date: 20050328
  Receipt Date: 20041004
  Transmission Date: 20050727
  Serious: Yes (Hospitalization, Other)
  Sender: FDA-Public Use
  Company Number: US-GLAXOSMITHKLINE-A0529294A

PATIENT
  Sex: Female
  Weight: 54.5 kg

DRUGS (2)
  1. PAXIL [Suspect]
     Indication: PANIC DISORDER
     Route: 065
     Dates: end: 20040201
  2. XANAX [Concomitant]
     Indication: PANIC ATTACK
     Dosage: .25MG AS REQUIRED
     Route: 048

REACTIONS (4)
  - DEPENDENCE [None]
  - DRUG WITHDRAWAL SYNDROME [None]
  - SELF MUTILATION [None]
  - SUICIDAL IDEATION [None]
